FAERS Safety Report 6000630-X (Version None)
Quarter: 2008Q4

REPORT INFORMATION
  Report Type: 
  Country: None (occurrence: None)
  Receive Date: 20081212
  Receipt Date: 20080917
  Transmission Date: 20090506
  Serious: Yes (Other)
  Sender: FDA-Public Use
  Company Number: 08-001510

PATIENT
  Sex: Female

DRUGS (3)
  1. FEMHRT [Suspect]
     Indication: HOT FLUSH
     Dosage: 0.5/2.5 MCG, QD, ORAL
     Route: 048
     Dates: start: 20080814
  2. ACTIVELLA /00875401/ (ESTRADIOL, NORETHISTERONE) [Concomitant]
  3. LAMICTAL [Concomitant]

REACTIONS (2)
  - CONVULSION [None]
  - DRUG INEFFECTIVE [None]
